FAERS Safety Report 5536676-5 (Version None)
Quarter: 2007Q4

REPORT INFORMATION
  Report Type: 
  Country: None (occurrence: None)
  Receive Date: 20071206
  Receipt Date: 20070703
  Transmission Date: 20080405
  Serious: Yes (Hospitalization, Other)
  Sender: FDA-Public Use
  Company Number: US-AMGEN-STX229430

PATIENT
  Sex: Male

DRUGS (10)
  1. ENBREL [Suspect]
     Indication: PSORIASIS
     Route: 065
     Dates: start: 20050726, end: 20070606
  2. CYCLOSPORINE [Concomitant]
  3. GEMFIBROZIL [Concomitant]
  4. TEGRETOL [Concomitant]
  5. ZYPREXA [Concomitant]
  6. RISPERDAL [Concomitant]
  7. LEXAPRO [Concomitant]
     Route: 048
  8. AMBIEN [Concomitant]
     Route: 048
  9. SORIATANE [Concomitant]
     Route: 048
  10. VITAMIN CAP [Concomitant]

REACTIONS (7)
  - HEADACHE [None]
  - HODGKIN'S DISEASE [None]
  - LYMPHADENOPATHY [None]
  - NAUSEA [None]
  - PNEUMONIA [None]
  - PYREXIA [None]
  - VOMITING [None]
